FAERS Safety Report 5183864-6 (Version None)
Quarter: 2006Q4

REPORT INFORMATION
  Report Type: 
  Country: None (occurrence: None)
  Receive Date: 20061220
  Receipt Date: 20061211
  Transmission Date: 20070319
  Serious: Yes (Other)
  Sender: FDA-Public Use
  Company Number: PHEH2006US15173

PATIENT
  Age: 67 Year
  Sex: Male

DRUGS (13)
  1. ZOMETA [Suspect]
     Indication: METASTASES TO BONE
     Dosage: 4MG Q3MO
     Dates: start: 20060106, end: 20060621
  2. LUPRON [Concomitant]
  3. REMERON [Concomitant]
  4. PREVACID [Concomitant]
  5. LOPRESSOR [Concomitant]
  6. FLOMAX [Concomitant]
  7. LASIX [Concomitant]
  8. DIGOXIN [Concomitant]
  9. POTASSIUM ACETATE [Concomitant]
  10. OXYCODONE HCL [Concomitant]
  11. MORPHINE [Concomitant]
  12. NAPROSYN [Concomitant]
  13. VALIUM [Concomitant]

REACTIONS (5)
  - BONE FRAGMENTATION [None]
  - BONE OPERATION [None]
  - OSTEONECROSIS [None]
  - PAIN IN JAW [None]
  - RESORPTION BONE INCREASED [None]
